FAERS Safety Report 6774452-6 (Version None)
Quarter: 2010Q2

REPORT INFORMATION
  Report Type: 
  Country: None (occurrence: None)
  Receive Date: 20100617
  Receipt Date: 20100604
  Transmission Date: 20101027
  Serious: Yes (Hospitalization)
  Sender: FDA-Public Use
  Company Number: PHFR2010GB00901

PATIENT
  Sex: Female

DRUGS (1)
  1. CLOZARIL [Suspect]
     Indication: SCHIZOPHRENIA
     Dosage: UNK
     Route: 048
     Dates: start: 20081117

REACTIONS (5)
  - CARDIOMYOPATHY [None]
  - DIZZINESS [None]
  - HYPOTENSION [None]
  - INFLUENZA LIKE ILLNESS [None]
  - PLEURISY [None]
